FAERS Safety Report 11103160 (Version 1)
Quarter: 2015Q2

REPORT INFORMATION
  Report Type: Spontaneous
  Country: IL (occurrence: None)
  Receive Date: 20150507
  Receipt Date: 20150507
  Transmission Date: 20150821
  Serious: Yes (Hospitalization)
  Sender: FDA-Public Use
  Company Number: 2015SGN00673

PATIENT
  Age: 75 Year
  Sex: Male

DRUGS (1)
  1. ADCETRIS [Suspect]
     Active Substance: BRENTUXIMAB VEDOTIN
     Indication: HODGKIN^S DISEASE
     Route: 042
     Dates: start: 20150223

REACTIONS (7)
  - Hepatic enzyme increased [None]
  - Vomiting [None]
  - Blood lactate dehydrogenase increased [None]
  - Nausea [None]
  - Feeling abnormal [None]
  - Fatigue [None]
  - Hyperglycaemia [None]

NARRATIVE: CASE EVENT DATE: 20150309
